FAERS Safety Report 9260667 (Version 1)
Quarter: 2013Q2

REPORT INFORMATION
  Report Type: Spontaneous
  Country: US (occurrence: US)
  Receive Date: 20130429
  Receipt Date: 20130429
  Transmission Date: 20140414
  Serious: No
  Sender: FDA-Public Use
  Company Number: US-PFIZER INC-2013131311

PATIENT
  Sex: Female

DRUGS (2)
  1. LYRICA [Suspect]
     Dosage: 900 MG, UNK
  2. LYRICA [Suspect]
     Dosage: 600 MG, UNK

REACTIONS (2)
  - Pain [Unknown]
  - Off label use [Unknown]
